FAERS Safety Report 5341794-0 (Version None)
Quarter: 2007Q2

REPORT INFORMATION
  Report Type: 
  Country: None (occurrence: None)
  Receive Date: 20070601
  Receipt Date: 20070522
  Transmission Date: 20071010
  Serious: Yes (Hospitalization)
  Sender: FDA-Public Use
  Company Number: US-JNJFOC-20070505678

PATIENT
  Sex: Male
  Weight: 106.6 kg

DRUGS (5)
  1. FENTANYL TRANSDERMAL SYSTEM [Suspect]
     Route: 062
  2. FENTANYL TRANSDERMAL SYSTEM [Suspect]
     Route: 062
  3. FENTANYL TRANSDERMAL SYSTEM [Suspect]
     Indication: BACK PAIN
     Route: 062
  4. NORCO [Concomitant]
     Indication: PAIN
     Dosage: AS NEEDED
     Route: 048
  5. FIORINAL [Concomitant]
     Indication: MIGRAINE
     Dosage: AS NEEDED
     Route: 048

REACTIONS (7)
  - BACK DISORDER [None]
  - DEVICE LEAKAGE [None]
  - DRUG TOXICITY [None]
  - FEELING ABNORMAL [None]
  - GAIT DISTURBANCE [None]
  - INADEQUATE ANALGESIA [None]
  - WEIGHT DECREASED [None]
